FAERS Safety Report 5221690-X (Version None)
Quarter: 2007Q1

REPORT INFORMATION
  Report Type: 
  Country: None (occurrence: None)
  Receive Date: 20070129
  Receipt Date: 20070116
  Transmission Date: 20070707
  Serious: Yes (Hospitalization)
  Sender: FDA-Public Use
  Company Number: PHBS2007BR01081

PATIENT
  Age: 29 Year
  Sex: Female

DRUGS (4)
  1. PREDNISOLONE [Suspect]
     Dosage: 40 MG/DAY
     Route: 048
  2. ASPIRIN [Concomitant]
  3. HEPARIN [Concomitant]
     Dosage: 12500 IU, BID
     Route: 058
  4. HYDRALAZINE HCL [Suspect]

REACTIONS (23)
  - ANTINUCLEAR ANTIBODY POSITIVE [None]
  - ANTIPHOSPHOLIPID ANTIBODIES POSITIVE [None]
  - BLOOD IMMUNOGLOBULIN G INCREASED [None]
  - CARDIOMEGALY [None]
  - COOMBS DIRECT TEST NEGATIVE [None]
  - DRUG EXPOSURE DURING PREGNANCY [None]
  - GENERALISED OEDEMA [None]
  - HAEMATURIA [None]
  - HAEMOGLOBIN DECREASED [None]
  - HYPERTENSION [None]
  - INTRA-UTERINE DEATH [None]
  - LUPUS NEPHRITIS [None]
  - NEPHROTIC SYNDROME [None]
  - OEDEMA PERIPHERAL [None]
  - PERICARDIAL EFFUSION [None]
  - PERIORBITAL OEDEMA [None]
  - PLATELET COUNT DECREASED [None]
  - PROTEIN URINE PRESENT [None]
  - PROTEINURIA [None]
  - RAYNAUD'S PHENOMENON [None]
  - SYPHILIS TEST POSITIVE [None]
  - SYSTEMIC LUPUS ERYTHEMATOSUS [None]
  - URINE ABNORMALITY [None]
